FAERS Safety Report 12554792 (Version 1)
Quarter: 2016Q3

REPORT INFORMATION
  Report Type: Spontaneous
  Country: CN (occurrence: CN)
  Receive Date: 20160713
  Receipt Date: 20160713
  Transmission Date: 20161109
  Serious: Yes (Hospitalization, Other)
  Sender: FDA-Public Use
  Company Number: CN-MYLANLABS-2016M1029022

PATIENT

DRUGS (1)
  1. CALCITONIN SALMON. [Suspect]
     Active Substance: CALCITONIN SALMON
     Dosage: 100 IU, QD
     Route: 058
     Dates: start: 20140325, end: 20140326

REACTIONS (7)
  - Polyuria [Unknown]
  - Brain oedema [Recovered/Resolved]
  - Hyponatraemia [Recovering/Resolving]
  - Vomiting [Recovered/Resolved]
  - Hypochloraemia [Recovering/Resolving]
  - Dysphoria [Recovered/Resolved]
  - Dehydration [Recovering/Resolving]

NARRATIVE: CASE EVENT DATE: 20140327
